FAERS Safety Report 6645080-8 (Version None)
Quarter: 2010Q1

REPORT INFORMATION
  Report Type: 
  Country: None (occurrence: None)
  Receive Date: 20100319
  Receipt Date: 20100319
  Transmission Date: 20100710
  Serious: No
  Sender: FDA-Public Use
  Company Number: None

PATIENT
  Age: 52 Year
  Sex: Female
  Weight: 103.4201 kg

DRUGS (1)
  1. SIMVASTATIN [Suspect]
     Indication: BLOOD CHOLESTEROL INCREASED
     Dosage: 20MG 1 TIME A DAY PO
     Route: 048
     Dates: start: 20090901, end: 20100310

REACTIONS (11)
  - COUGH [None]
  - DYSPEPSIA [None]
  - ERUCTATION [None]
  - FAMILY STRESS [None]
  - HEADACHE [None]
  - IMPAIRED WORK ABILITY [None]
  - MUSCLE STRAIN [None]
  - NASAL CONGESTION [None]
  - NO THERAPEUTIC RESPONSE [None]
  - RHINORRHOEA [None]
  - SNEEZING [None]
